FAERS Safety Report 23867687 (Version 2)
Quarter: 2024Q2

REPORT INFORMATION
  Report Type: Spontaneous
  Country: PT (occurrence: PT)
  Receive Date: 20240517
  Receipt Date: 20240531
  Transmission Date: 20240716
  Serious: Yes (Life-Threatening, Hospitalization)
  Sender: FDA-Public Use
  Company Number: PT-TEVA-VS-3198409

PATIENT
  Age: 6 Year
  Sex: Male

DRUGS (17)
  1. LEVETIRACETAM [Suspect]
     Active Substance: LEVETIRACETAM
     Indication: Febrile infection-related epilepsy syndrome
     Route: 065
  2. VALPROIC ACID [Suspect]
     Active Substance: VALPROIC ACID
     Indication: Febrile infection-related epilepsy syndrome
     Route: 065
  3. MIDAZOLAM [Concomitant]
     Active Substance: MIDAZOLAM
     Indication: Febrile infection-related epilepsy syndrome
     Route: 065
  4. PERAMPANEL [Concomitant]
     Active Substance: PERAMPANEL
     Indication: Febrile infection-related epilepsy syndrome
     Route: 065
  5. PYRIDOXINE [Concomitant]
     Active Substance: PYRIDOXINE
     Indication: Febrile infection-related epilepsy syndrome
     Dosage: STARTING ON DAY 17
     Route: 042
  6. METHYLPREDNISOLONE [Suspect]
     Active Substance: METHYLPREDNISOLONE
     Indication: Febrile infection-related epilepsy syndrome
     Dosage: STARTING ON DAY 6
     Route: 042
  7. DIAZEPAM [Suspect]
     Active Substance: DIAZEPAM
     Indication: Febrile infection-related epilepsy syndrome
     Route: 042
  8. PROPOFOL [Concomitant]
     Active Substance: PROPOFOL
     Indication: Febrile infection-related epilepsy syndrome
     Route: 065
  9. CLINDAMYCIN [Concomitant]
     Active Substance: CLINDAMYCIN
     Indication: Antibiotic therapy
     Route: 065
  10. PHENYTOIN [Concomitant]
     Active Substance: PHENYTOIN
     Indication: Febrile infection-related epilepsy syndrome
     Route: 065
  11. LACOSAMIDE [Concomitant]
     Active Substance: LACOSAMIDE
     Indication: Febrile infection-related epilepsy syndrome
     Route: 065
  12. IMMUNE GLOBULIN NOS [Suspect]
     Active Substance: IMMUNE GLOBULIN NOS
     Indication: Febrile infection-related epilepsy syndrome
     Dosage: 2 G/KG; DIVIDED BETWEEN DAYS 17 AND 18
     Route: 042
  13. KETAMINE [Concomitant]
     Active Substance: KETAMINE
     Indication: Febrile infection-related epilepsy syndrome
     Route: 065
  14. ACYCLOVIR [Concomitant]
     Active Substance: ACYCLOVIR
     Indication: Antiviral treatment
     Route: 065
  15. CEFTRIAXONE [Concomitant]
     Active Substance: CEFTRIAXONE\CEFTRIAXONE SODIUM
     Indication: Antibiotic therapy
     Route: 065
  16. ANAKINRA [Concomitant]
     Active Substance: ANAKINRA
     Indication: Febrile infection-related epilepsy syndrome
     Dosage: STARTING ON DAY 17
     Route: 058
  17. CANNABIDIOL [Suspect]
     Active Substance: CANNABIDIOL
     Indication: Febrile infection-related epilepsy syndrome
     Route: 065

REACTIONS (2)
  - Drug ineffective [Unknown]
  - Electroencephalogram abnormal [Unknown]
